FAERS Safety Report 7237905-2 (Version None)
Quarter: 2011Q1

REPORT INFORMATION
  Report Type: 
  Country: None (occurrence: None)
  Receive Date: 20110121
  Receipt Date: 20110113
  Transmission Date: 20110831
  Serious: Yes (Other)
  Sender: FDA-Public Use
  Company Number: FR-PFIZER INC-2011008624

PATIENT
  Age: 84 Year
  Sex: Female

DRUGS (4)
  1. CELESTONE [Concomitant]
     Indication: PAIN IN EXTREMITY
     Dosage: 1 INJECTION, 1X/DAY
     Dates: start: 20101221, end: 20101221
  2. ADVIL [Suspect]
     Dosage: 400 MG, 1X/DAY
     Dates: start: 20101222, end: 20101222
  3. CELESTONE [Concomitant]
     Dosage: 1 INJECTION, 1X/DAY
     Dates: start: 20101228, end: 20101228
  4. ADVIL [Suspect]
     Indication: PAIN IN EXTREMITY
     Dosage: 200 MG, 1X/DAY
     Dates: start: 20101221, end: 20101221

REACTIONS (5)
  - PRURITUS GENERALISED [None]
  - OESOPHAGEAL PAIN [None]
  - PHARYNGEAL OEDEMA [None]
  - VAGINAL OEDEMA [None]
  - GASTROINTESTINAL PAIN [None]
